FAERS Safety Report 6394112-3 (Version None)
Quarter: 2009Q4

REPORT INFORMATION
  Report Type: 
  Country: None (occurrence: None)
  Receive Date: 20091008
  Receipt Date: 20090929
  Transmission Date: 20100525
  Serious: Yes (Hospitalization)
  Sender: FDA-Public Use
  Company Number: PHHO2009KR11646

PATIENT
  Sex: Female
  Weight: 49.4 kg

DRUGS (3)
  1. ERL 080A ERL+TAB [Suspect]
     Indication: RENAL TRANSPLANT
     Dosage: UNK
     Route: 048
     Dates: start: 20090311, end: 20090908
  2. TACROLIMUS [Concomitant]
     Indication: RENAL TRANSPLANT
     Dosage: 2.5 MG, BID
     Route: 048
     Dates: start: 20090310
  3. PRANDIN [Concomitant]
     Indication: RENAL TRANSPLANT
     Dosage: 6 MG, BID
     Route: 048
     Dates: start: 20090316

REACTIONS (2)
  - HERPES ZOSTER [None]
  - SKIN LESION [None]
